FAERS Safety Report 24668340 (Version 3)
Quarter: 2024Q4

REPORT INFORMATION
  Report Type: Spontaneous
  Country: IN (occurrence: IN)
  Receive Date: 20241127
  Receipt Date: 20241128
  Transmission Date: 20250114
  Serious: Yes (Other)
  Sender: ARGENX BVBA
  Company Number: IN-ARGENX-2024-ARGX-IN010536

PATIENT

DRUGS (2)
  1. VYVGART [Suspect]
     Active Substance: EFGARTIGIMOD ALFA-FCAB
     Indication: Myasthenia gravis
     Dosage: UNK
     Route: 042
  2. PREDNISONE [Suspect]
     Active Substance: PREDNISONE
     Indication: Product used for unknown indication
     Dosage: UNK
     Route: 065
     Dates: start: 202403

REACTIONS (11)
  - Myasthenia gravis [Unknown]
  - Diaphragmatic injury [Unknown]
  - Thymoma [Unknown]
  - Loss of consciousness [Unknown]
  - Weight increased [Unknown]
  - Pain [Unknown]
  - Fall [Unknown]
  - Limb discomfort [Unknown]
  - Insomnia [Unknown]
  - Back pain [Unknown]
  - Dyspnoea [Unknown]
